FAERS Safety Report 10952962 (Version 1)
Quarter: 2015Q1

REPORT INFORMATION
  Report Type: Spontaneous
  Country: US (occurrence: None)
  Receive Date: 20150324
  Receipt Date: 20150324
  Transmission Date: 20150721
  Serious: No
  Sender: FDA-Public Use
  Company Number: None

PATIENT

DRUGS (11)
  1. VITAMIN C [Concomitant]
     Active Substance: ASCORBIC ACID
  2. SYNTHROID [Concomitant]
     Active Substance: LEVOTHYROXINE SODIUM
  3. REMERON [Concomitant]
     Active Substance: MIRTAZAPINE
  4. CLONAZEPAM. [Concomitant]
     Active Substance: CLONAZEPAM
  5. FLORADIX IRON [Concomitant]
  6. PANTARAZOLE [Concomitant]
  7. NEURONTIN [Concomitant]
     Active Substance: GABAPENTIN
  8. HSO PROBOITICS [Concomitant]
  9. RELENZA [Suspect]
     Active Substance: ZANAMIVIR
     Indication: INFLUENZA
     Dosage: 2 PUFFS 2X
     Route: 048
     Dates: start: 20150317, end: 20150319
  10. VITAMIN D3 [Concomitant]
     Active Substance: CHOLECALCIFEROL
  11. FISHER WALLACE STIMULATOR [Concomitant]

REACTIONS (1)
  - Restless legs syndrome [None]
